FAERS Safety Report 25664452 (Version 1)
Quarter: 2025Q3

REPORT INFORMATION
  Report Type: Spontaneous
  Country: EU (occurrence: EU)
  Receive Date: 20250811
  Receipt Date: 20250811
  Transmission Date: 20251020
  Serious: Yes (Hospitalization)
  Sender: MYLAN
  Company Number: EU-MYLANLABS-2025M1066240

PATIENT
  Age: 43 Year
  Sex: Female

DRUGS (60)
  1. LEVETIRACETAM [Suspect]
     Active Substance: LEVETIRACETAM
     Indication: Status epilepticus
  2. LEVETIRACETAM [Suspect]
     Active Substance: LEVETIRACETAM
     Route: 065
  3. LEVETIRACETAM [Suspect]
     Active Substance: LEVETIRACETAM
     Route: 065
  4. LEVETIRACETAM [Suspect]
     Active Substance: LEVETIRACETAM
  5. LACOSAMIDE [Suspect]
     Active Substance: LACOSAMIDE
     Indication: Status epilepticus
  6. LACOSAMIDE [Suspect]
     Active Substance: LACOSAMIDE
     Route: 065
  7. LACOSAMIDE [Suspect]
     Active Substance: LACOSAMIDE
     Route: 065
  8. LACOSAMIDE [Suspect]
     Active Substance: LACOSAMIDE
  9. TOPIRAMATE [Suspect]
     Active Substance: TOPIRAMATE
     Indication: Status epilepticus
  10. TOPIRAMATE [Suspect]
     Active Substance: TOPIRAMATE
     Route: 065
  11. TOPIRAMATE [Suspect]
     Active Substance: TOPIRAMATE
     Route: 065
  12. TOPIRAMATE [Suspect]
     Active Substance: TOPIRAMATE
  13. METHYLPREDNISOLONE [Suspect]
     Active Substance: METHYLPREDNISOLONE
     Indication: Status epilepticus
     Dosage: 1 GRAM, QD
  14. METHYLPREDNISOLONE [Suspect]
     Active Substance: METHYLPREDNISOLONE
     Dosage: 1 GRAM, QD
     Route: 065
  15. METHYLPREDNISOLONE [Suspect]
     Active Substance: METHYLPREDNISOLONE
     Dosage: 1 GRAM, QD
     Route: 065
  16. METHYLPREDNISOLONE [Suspect]
     Active Substance: METHYLPREDNISOLONE
     Dosage: 1 GRAM, QD
  17. VALPROIC ACID [Suspect]
     Active Substance: VALPROIC ACID
     Indication: Status epilepticus
  18. VALPROIC ACID [Suspect]
     Active Substance: VALPROIC ACID
     Route: 065
  19. VALPROIC ACID [Suspect]
     Active Substance: VALPROIC ACID
     Route: 065
  20. VALPROIC ACID [Suspect]
     Active Substance: VALPROIC ACID
  21. PERAMPANEL [Suspect]
     Active Substance: PERAMPANEL
     Indication: Status epilepticus
  22. PERAMPANEL [Suspect]
     Active Substance: PERAMPANEL
     Route: 065
  23. PERAMPANEL [Suspect]
     Active Substance: PERAMPANEL
     Route: 065
  24. PERAMPANEL [Suspect]
     Active Substance: PERAMPANEL
  25. IMMUNE GLOBULIN NOS [Suspect]
     Active Substance: IMMUNE GLOBULIN NOS
     Indication: Status epilepticus
  26. IMMUNE GLOBULIN NOS [Suspect]
     Active Substance: IMMUNE GLOBULIN NOS
     Route: 042
  27. IMMUNE GLOBULIN NOS [Suspect]
     Active Substance: IMMUNE GLOBULIN NOS
     Route: 042
  28. IMMUNE GLOBULIN NOS [Suspect]
     Active Substance: IMMUNE GLOBULIN NOS
  29. THIOPENTAL [Suspect]
     Active Substance: THIOPENTAL
     Indication: Status epilepticus
  30. THIOPENTAL [Suspect]
     Active Substance: THIOPENTAL
     Route: 065
  31. THIOPENTAL [Suspect]
     Active Substance: THIOPENTAL
     Route: 065
  32. THIOPENTAL [Suspect]
     Active Substance: THIOPENTAL
  33. KETAMINE [Suspect]
     Active Substance: KETAMINE
     Indication: Status epilepticus
  34. KETAMINE [Suspect]
     Active Substance: KETAMINE
     Route: 065
  35. KETAMINE [Suspect]
     Active Substance: KETAMINE
     Route: 065
  36. KETAMINE [Suspect]
     Active Substance: KETAMINE
  37. TOCILIZUMAB [Concomitant]
     Active Substance: TOCILIZUMAB
     Indication: New onset refractory status epilepticus
     Dosage: 8 MILLIGRAM/KILOGRAM, Q28D
  38. TOCILIZUMAB [Concomitant]
     Active Substance: TOCILIZUMAB
     Dosage: 8 MILLIGRAM/KILOGRAM, Q28D
  39. TOCILIZUMAB [Concomitant]
     Active Substance: TOCILIZUMAB
     Dosage: 8 MILLIGRAM/KILOGRAM, Q28D
     Route: 065
  40. TOCILIZUMAB [Concomitant]
     Active Substance: TOCILIZUMAB
     Dosage: 8 MILLIGRAM/KILOGRAM, Q28D
     Route: 065
  41. TOCILIZUMAB [Concomitant]
     Active Substance: TOCILIZUMAB
     Dosage: 8 MILLIGRAM/KILOGRAM, Q28D, SECOND INFUSION
  42. TOCILIZUMAB [Concomitant]
     Active Substance: TOCILIZUMAB
     Dosage: 8 MILLIGRAM/KILOGRAM, Q28D, SECOND INFUSION
  43. TOCILIZUMAB [Concomitant]
     Active Substance: TOCILIZUMAB
     Dosage: 8 MILLIGRAM/KILOGRAM, Q28D, SECOND INFUSION
     Route: 065
  44. TOCILIZUMAB [Concomitant]
     Active Substance: TOCILIZUMAB
     Dosage: 8 MILLIGRAM/KILOGRAM, Q28D, SECOND INFUSION
     Route: 065
  45. TOCILIZUMAB [Concomitant]
     Active Substance: TOCILIZUMAB
     Dosage: 8 MILLIGRAM/KILOGRAM, Q28D, THIRD INFUSION
  46. TOCILIZUMAB [Concomitant]
     Active Substance: TOCILIZUMAB
     Dosage: 8 MILLIGRAM/KILOGRAM, Q28D, THIRD INFUSION
     Route: 065
  47. TOCILIZUMAB [Concomitant]
     Active Substance: TOCILIZUMAB
     Dosage: 8 MILLIGRAM/KILOGRAM, Q28D, THIRD INFUSION
  48. TOCILIZUMAB [Concomitant]
     Active Substance: TOCILIZUMAB
     Dosage: 8 MILLIGRAM/KILOGRAM, Q28D, THIRD INFUSION
     Route: 065
  49. MORPHINE [Concomitant]
     Active Substance: MORPHINE
     Indication: Dyskinesia
  50. MORPHINE [Concomitant]
     Active Substance: MORPHINE
     Route: 065
  51. MORPHINE [Concomitant]
     Active Substance: MORPHINE
     Route: 065
  52. MORPHINE [Concomitant]
     Active Substance: MORPHINE
  53. MIDAZOLAM [Concomitant]
     Active Substance: MIDAZOLAM
     Indication: Product used for unknown indication
  54. MIDAZOLAM [Concomitant]
     Active Substance: MIDAZOLAM
     Route: 065
  55. MIDAZOLAM [Concomitant]
     Active Substance: MIDAZOLAM
     Route: 065
  56. MIDAZOLAM [Concomitant]
     Active Substance: MIDAZOLAM
  57. PROPOFOL [Concomitant]
     Active Substance: PROPOFOL
     Indication: Product used for unknown indication
  58. PROPOFOL [Concomitant]
     Active Substance: PROPOFOL
     Route: 065
  59. PROPOFOL [Concomitant]
     Active Substance: PROPOFOL
     Route: 065
  60. PROPOFOL [Concomitant]
     Active Substance: PROPOFOL

REACTIONS (1)
  - Drug ineffective [Unknown]
